FAERS Safety Report 7158548-5 (Version None)
Quarter: 2010Q4

REPORT INFORMATION
  Report Type: 
  Country: None (occurrence: None)
  Receive Date: 20101214
  Receipt Date: 20100519
  Transmission Date: 20110411
  Serious: No
  Sender: FDA-Public Use
  Company Number: US-ASTRAZENECA-2010SE23139

PATIENT
  Sex: Male

DRUGS (1)
  1. CRESTOR [Suspect]
     Dosage: 1 TABLET TWICE DAILY AND THEN 2 TABLETS AT BEDTIME
     Route: 048

REACTIONS (2)
  - MUSCLE STRAIN [None]
  - SENSATION OF HEAVINESS [None]
